FAERS Safety Report 13896928 (Version 15)
Quarter: 2018Q2

REPORT INFORMATION
  Report Type: Spontaneous
  Country: CA (occurrence: CA)
  Receive Date: 20170823
  Receipt Date: 20180625
  Transmission Date: 20180711
  Serious: Yes (Other)
  Sender: FDA-Public Use
  Company Number: CA-CELLTRION INC.-2017CA010575

PATIENT

DRUGS (10)
  1. INFLECTRA [Suspect]
     Active Substance: INFLIXIMAB-DYYB
     Dosage: 800 MG, CYCLIC  (EVERY 6 WEEKS)
     Route: 042
     Dates: start: 20180215, end: 20180215
  2. AZATHIOPRINE. [Concomitant]
     Active Substance: AZATHIOPRINE
     Dosage: UNK
     Route: 065
     Dates: start: 20180516, end: 20180526
  3. INFLECTRA [Suspect]
     Active Substance: INFLIXIMAB-DYYB
     Dosage: 800 MG, CYCLIC (EVERY 6 WEEKS)
     Route: 042
     Dates: start: 20180105, end: 20180105
  4. INFLECTRA [Suspect]
     Active Substance: INFLIXIMAB-DYYB
     Dosage: 1000 MG, CYCLIC, EVERY 6 WEEKS
     Route: 042
     Dates: start: 20180409, end: 20180409
  5. INFLECTRA [Suspect]
     Active Substance: INFLIXIMAB-DYYB
     Dosage: 1000 MG, CYCLIC, EVERY 4 WEEKS
     Route: 042
     Dates: start: 20180313, end: 20180313
  6. INFLECTRA [Suspect]
     Active Substance: INFLIXIMAB-DYYB
     Dosage: 500 MG, CYCLIC (ON 0,2,6 WEEKS, THEN EVERY 8 WEEKS)
     Route: 042
     Dates: start: 20171207, end: 20171207
  7. INFLECTRA [Suspect]
     Active Substance: INFLIXIMAB-DYYB
     Dosage: 1000 MG, CYCLIC, EVERY 4 WEEKS
     Route: 042
     Dates: start: 20180313, end: 20180313
  8. INFLECTRA [Suspect]
     Active Substance: INFLIXIMAB-DYYB
     Dosage: 800 MG, CYCLIC (EVERY 6 WEEKS)
     Route: 042
     Dates: start: 20180105
  9. INFLECTRA [Suspect]
     Active Substance: INFLIXIMAB-DYYB
     Dosage: 1000 MG, CYCLIC, EVERY 4 WEEKS
     Route: 042
     Dates: start: 20180507
  10. INFLECTRA [Suspect]
     Active Substance: INFLIXIMAB-DYYB
     Indication: CROHN^S DISEASE
     Dosage: 500 MG, CYCLIC (ON 0,2,6 WEEKS, THEN EVERY 8 WEEKS)
     Route: 042
     Dates: start: 20170509, end: 20171207

REACTIONS (12)
  - Haemolysis [Unknown]
  - Poor venous access [Unknown]
  - Haematochezia [Not Recovered/Not Resolved]
  - Haematochezia [Recovered/Resolved]
  - Gastroenteritis [Recovered/Resolved]
  - Drug effect incomplete [Recovering/Resolving]
  - Product use issue [Unknown]
  - Blood pressure fluctuation [Unknown]
  - Drug prescribing error [Unknown]
  - Vein rupture [Unknown]
  - Overweight [Unknown]
  - Urinary tract infection [Not Recovered/Not Resolved]

NARRATIVE: CASE EVENT DATE: 20170712
